FAERS Safety Report 21055962 (Version 1)
Quarter: 2022Q3

REPORT INFORMATION
  Report Type: Spontaneous
  Country: BR (occurrence: BR)
  Receive Date: 20220708
  Receipt Date: 20220708
  Transmission Date: 20221027
  Serious: Yes (Other)
  Sender: FDA-Public Use
  Company Number: BR-NOVOPROD-933393

PATIENT
  Age: 10 Year
  Sex: Female
  Weight: 27.3 kg

DRUGS (2)
  1. TRESIBA [Suspect]
     Active Substance: INSULIN DEGLUDEC
     Indication: Type 1 diabetes mellitus
     Dosage: 12 IU, QD( (0.4IU/KG)
  2. INSULIN LISPRO [Concomitant]
     Active Substance: INSULIN LISPRO
     Indication: Type 1 diabetes mellitus
     Dosage: UNK

REACTIONS (5)
  - Ketoacidosis [Unknown]
  - Blood glucose increased [Unknown]
  - Eye contusion [Unknown]
  - Somnolence [Unknown]
  - Saliva altered [Unknown]
